FAERS Safety Report 12904179 (Version 4)
Quarter: 2016Q4

REPORT INFORMATION
  Report Type: Report from Study
  Country: BR (occurrence: BR)
  Receive Date: 20161102
  Receipt Date: 20161222
  Transmission Date: 20170207
  Serious: Yes (Other)
  Sender: FDA-Public Use
  Company Number: PHHY2016BR045640

PATIENT
  Age: 67 Year
  Sex: Female
  Weight: 55 kg

DRUGS (6)
  1. OMEPRAZOL [Concomitant]
     Active Substance: OMEPRAZOLE
     Indication: PRODUCT USED FOR UNKNOWN INDICATION
     Dosage: 20 MG, UNK
     Route: 048
  2. METRONIDAZOL [Concomitant]
     Active Substance: METRONIDAZOLE
     Indication: PRODUCT USED FOR UNKNOWN INDICATION
     Dosage: 1 DF, QD
     Route: 048
  3. EXJADE [Suspect]
     Active Substance: DEFERASIROX
     Indication: THALASSAEMIA BETA
     Dosage: 10 MG/KG, QD (1 DF OF 500 MG)
     Route: 048
  4. EXJADE [Suspect]
     Active Substance: DEFERASIROX
     Dosage: 25 MG/KG, QD (3 DF OF 500 MG)
     Route: 048
  5. EXJADE [Suspect]
     Active Substance: DEFERASIROX
     Dosage: 3 DF (1500 MG), QD
     Route: 048
  6. EXJADE [Suspect]
     Active Substance: DEFERASIROX
     Dosage: 20 MG/KG, QD (2 DF OF 500 MG)
     Route: 048

REACTIONS (20)
  - Blood iron increased [Not Recovered/Not Resolved]
  - Renal pain [Recovered/Resolved]
  - Deafness [Unknown]
  - Anaemia [Unknown]
  - Pain in extremity [Recovered/Resolved]
  - Malaise [Unknown]
  - Serum ferritin increased [Unknown]
  - Salivary hypersecretion [Unknown]
  - Hepatic pain [Recovered/Resolved]
  - Dizziness [Recovered/Resolved]
  - Abdominal pain upper [Recovering/Resolving]
  - Urinary tract infection [Unknown]
  - Urinary tract pain [Unknown]
  - Gastrointestinal bacterial infection [Recovered/Resolved]
  - Tremor [Recovered/Resolved]
  - Hepatomegaly [Recovered/Resolved]
  - Haemoglobin decreased [Unknown]
  - Weight decreased [Not Recovered/Not Resolved]
  - Dizziness [Recovering/Resolving]
  - Abdominal discomfort [Not Recovered/Not Resolved]

NARRATIVE: CASE EVENT DATE: 20161028
